FAERS Safety Report 6399057-0 (Version None)
Quarter: 2009Q4

REPORT INFORMATION
  Report Type: 
  Country: None (occurrence: None)
  Receive Date: 20091013
  Receipt Date: 20091005
  Transmission Date: 20100525
  Serious: Yes (Hospitalization)
  Sender: FDA-Public Use
  Company Number: DE-BAXTER-2009BH014274

PATIENT
  Age: 65 Year
  Sex: Female
  Weight: 60 kg

DRUGS (7)
  1. ENDOXAN BAXTER [Suspect]
     Indication: B-CELL LYMPHOMA
     Dosage: 400
     Route: 042
     Dates: start: 20090301, end: 20090301
  2. ENDOXAN BAXTER [Suspect]
     Dosage: 400
     Route: 042
     Dates: start: 20090201, end: 20090201
  3. FLUDARA [Suspect]
     Indication: B-CELL LYMPHOMA
     Dosage: 40
     Route: 042
     Dates: start: 20090301, end: 20090301
  4. FLUDARA [Suspect]
     Dosage: 40
     Route: 042
     Dates: start: 20090201, end: 20090201
  5. MABTHERA [Suspect]
     Indication: B-CELL LYMPHOMA
     Dosage: 6-10MG
     Route: 042
     Dates: start: 20090301, end: 20090301
  6. MABTHERA [Suspect]
     Dosage: 6-10MG
     Route: 042
     Dates: start: 20090201, end: 20090201
  7. COTRIM [Suspect]
     Indication: DRUG USE FOR UNKNOWN INDICATION
     Route: 065

REACTIONS (2)
  - MYOPATHY [None]
  - POLYNEUROPATHY [None]
